FAERS Safety Report 21470943 (Version 1)
Quarter: 2022Q4

REPORT INFORMATION
  Report Type: Report from Study
  Country: US (occurrence: US)
  Receive Date: 20221018
  Receipt Date: 20221018
  Transmission Date: 20230112
  Serious: No
  Sender: FDA-Public Use
  Company Number: US-ABBVIE-4141092

PATIENT
  Sex: Male

DRUGS (2)
  1. VENCLEXTA [Suspect]
     Active Substance: VENETOCLAX
     Indication: Mantle cell lymphoma
     Route: 048
     Dates: start: 202208
  2. VENCLEXTA [Suspect]
     Active Substance: VENETOCLAX
     Indication: Mantle cell lymphoma
     Route: 048
     Dates: start: 20220831

REACTIONS (10)
  - Urticaria [Unknown]
  - Nausea [Unknown]
  - Paraesthesia [Unknown]
  - Swelling face [Unknown]
  - White blood cell count increased [Unknown]
  - Asthenia [Unknown]
  - Headache [Unknown]
  - Dysgeusia [Unknown]
  - Vomiting [Unknown]
  - Erythema [Unknown]

NARRATIVE: CASE EVENT DATE: 20220101
